FAERS Safety Report 7537309-9 (Version None)
Quarter: 2011Q2

REPORT INFORMATION
  Report Type: 
  Country: None (occurrence: None)
  Receive Date: 20110609
  Receipt Date: 20110531
  Transmission Date: 20111010
  Serious: Yes (Other)
  Sender: FDA-Public Use
  Company Number: IE-BRISTOL-MYERS SQUIBB COMPANY-15793136

PATIENT
  Age: 61 Year
  Sex: Female

DRUGS (4)
  1. WARFARIN SODIUM [Suspect]
     Indication: PULMONARY EMBOLISM
     Dates: start: 20090401
  2. HEPARIN SODIUM [Suspect]
     Indication: PULMONARY EMBOLISM
  3. AZATHIOPRINE [Suspect]
     Indication: INFLAMMATION
  4. MYCOPHENOLATE MEFETIL [Suspect]
     Indication: INFLAMMATION

REACTIONS (1)
  - DERMATOMYOSITIS [None]
